FAERS Safety Report 8532979 (Version 3)
Quarter: 2012Q4

REPORT INFORMATION
  Report Type: 
  Country: US (occurrence: US)
  Receive Date: 20120427
  Receipt Date: 20121025
  Transmission Date: 20130627
  Serious: Yes (Other)
  Sender: FDA-Public Use
  Company Number: US-PFIZER INC-2012101436

PATIENT
  Age: 69 Year
  Sex: Female
  Weight: 73.02 kg

DRUGS (2)
  1. CELEBREX [Suspect]
     Indication: NERVOUS SYSTEM DISORDER
     Dosage: 300 mg, daily
  2. EFFEXOR XR [Suspect]
     Dosage: UNK

REACTIONS (5)
  - Cerebrovascular accident [Unknown]
  - Monoplegia [Not Recovered/Not Resolved]
  - Memory impairment [Unknown]
  - Confusional state [Unknown]
  - Feeling abnormal [Unknown]
